FAERS Safety Report 5673454-0 (Version None)
Quarter: 2008Q1

REPORT INFORMATION
  Report Type: 
  Country: None (occurrence: None)
  Receive Date: 20080319
  Receipt Date: 20080307
  Transmission Date: 20080703
  Serious: Yes (Hospitalization)
  Sender: FDA-Public Use
  Company Number: FR-ROCHE-552031

PATIENT
  Age: 73 Year
  Sex: Female

DRUGS (8)
  1. ROCEPHIN [Suspect]
     Route: 065
     Dates: end: 20080208
  2. INIPOMP [Concomitant]
  3. CALCIUM [Concomitant]
  4. VITAMINE D [Concomitant]
  5. LERCAN [Concomitant]
  6. KARDEGIC [Concomitant]
  7. COTAREG [Concomitant]
  8. FELDENE [Concomitant]
     Dosage: STOPPED 8 TO 15 DAYS BEFORE THE INTRODUCTION OF CEFTRIAXONE

REACTIONS (1)
  - NEPHRITIS INTERSTITIAL [None]
